FAERS Safety Report 7877654-0 (Version None)
Quarter: 2011Q4

REPORT INFORMATION
  Report Type: 
  Country: None (occurrence: None)
  Receive Date: 20111031
  Receipt Date: 20111031
  Transmission Date: 20120403
  Serious: Yes (Hospitalization)
  Sender: FDA-Public Use
  Company Number: None

PATIENT
  Age: 87 Year
  Sex: Male
  Weight: 87.089 kg

DRUGS (6)
  1. TAMSULOSIN HCL [Concomitant]
     Route: 048
  2. ASPIRIN [Concomitant]
     Route: 048
  3. VERAPAMIL [Concomitant]
     Route: 048
  4. PRADAXA [Suspect]
     Indication: ATRIAL FIBRILLATION
     Dosage: 150 MG
     Route: 048
     Dates: start: 20110801, end: 20111005
  5. IRON [Concomitant]
     Route: 048
  6. COLACE [Concomitant]
     Route: 048

REACTIONS (6)
  - DIZZINESS [None]
  - INCISION SITE HAEMORRHAGE [None]
  - ASTHENIA [None]
  - COORDINATION ABNORMAL [None]
  - GASTROINTESTINAL HAEMORRHAGE [None]
  - ANAEMIA [None]
